FAERS Safety Report 18156470 (Version 1)
Quarter: 2020Q3

REPORT INFORMATION
  Report Type: Spontaneous
  Country: US (occurrence: US)
  Receive Date: 20200817
  Receipt Date: 20200817
  Transmission Date: 20201103
  Serious: No
  Sender: FDA-Public Use
  Company Number: US-PFIZER INC-2020310594

PATIENT
  Age: 16 Year
  Sex: Male

DRUGS (2)
  1. EUCRISA [Suspect]
     Active Substance: CRISABOROLE
     Indication: PERIORAL DERMATITIS
     Dosage: UNK, 1X/DAY (DIRECTIONS: APPLY TO AFFECTED AREA(S) ONCE DAILY)
  2. METRONIDAZOLE. [Concomitant]
     Active Substance: METRONIDAZOLE
     Indication: PERIORAL DERMATITIS
     Dosage: UNK, DAILY (APPLY TO AFFECTED AREAS ON FACE DAILY)

REACTIONS (3)
  - Product use in unapproved indication [Unknown]
  - Condition aggravated [Unknown]
  - Off label use [Unknown]
